FAERS Safety Report 4779996-4 (Version None)
Quarter: 2005Q3

REPORT INFORMATION
  Report Type: 
  Country: None (occurrence: None)
  Receive Date: 20050927
  Receipt Date: 20050912
  Transmission Date: 20060218
  Serious: Yes (Other)
  Sender: FDA-Public Use
  Company Number: US-GLAXOSMITHKLINE-A0573806A

PATIENT
  Sex: Male
  Weight: 71 kg

DRUGS (6)
  1. NICODERM 21MG (RX) [Suspect]
     Route: 062
  2. STEROIDS [Concomitant]
     Indication: EMPHYSEMA
  3. ALCOHOL [Concomitant]
     Route: 048
  4. NICOTINE [Concomitant]
     Route: 055
  5. CAFFEINE [Concomitant]
     Indication: CAFFEINE CONSUMPTION
     Route: 048
  6. ANTI-ANXIETY MED- NAME UNKNOWN [Concomitant]

REACTIONS (4)
  - AMNESIA [None]
  - CARDIAC ARREST [None]
  - FEELING ABNORMAL [None]
  - INTENTIONAL MISUSE [None]
